FAERS Safety Report 9638385 (Version 1)
Quarter: 2013Q4

REPORT INFORMATION
  Report Type: Spontaneous
  Country: IT (occurrence: IT)
  Receive Date: 20131022
  Receipt Date: 20131022
  Transmission Date: 20140711
  Serious: Yes (Hospitalization, Other)
  Sender: FDA-Public Use
  Company Number: IT-TEVA-437762ISR

PATIENT
  Age: 56 Year
  Sex: Female

DRUGS (1)
  1. AMOXICILLINA TRIIDRATA/POTASSIO CLAVULANATO [Suspect]
     Indication: TOOTH ABSCESS
     Dosage: 1 GRAM DAILY;
     Route: 048
     Dates: start: 20130903, end: 20130903

REACTIONS (4)
  - Syncope [Recovered/Resolved]
  - Pruritus [Recovered/Resolved]
  - Erythema [Recovered/Resolved]
  - Malaise [Recovered/Resolved]
